FAERS Safety Report 15627261 (Version 2)
Quarter: 2018Q4

REPORT INFORMATION
  Report Type: Spontaneous
  Country: FR (occurrence: FR)
  Receive Date: 20181116
  Receipt Date: 20181128
  Transmission Date: 20190205
  Serious: Yes (Hospitalization)
  Sender: FDA-Public Use
  Company Number: FR-PFIZER INC-2018464546

PATIENT
  Age: 67 Year
  Sex: Female
  Weight: 88.5 kg

DRUGS (15)
  1. VINCRISTINE HOSPIRA [Suspect]
     Active Substance: VINCRISTINE
     Indication: ACUTE LYMPHOCYTIC LEUKAEMIA
     Route: 065
     Dates: start: 20180802, end: 20180824
  2. LEDERFOLINE [Suspect]
     Active Substance: LEUCOVORIN CALCIUM
     Indication: PROPHYLAXIS
     Dosage: 25 KIU, WEEKLY
     Route: 048
     Dates: start: 20180729
  3. METHOTREXATE MYLAN [Suspect]
     Active Substance: METHOTREXATE SODIUM
     Indication: ACUTE LYMPHOCYTIC LEUKAEMIA
     Dosage: 75 MG, CYCLIC (J-5, J9, J16, J23 PHASE 1 ET J1PHASE 2)
     Route: 037
     Dates: start: 20180727, end: 20180918
  4. SPRYCEL [Suspect]
     Active Substance: DASATINIB
     Indication: ACUTE LYMPHOCYTIC LEUKAEMIA
     Dosage: 140 MG, 1X/DAY
     Route: 048
     Dates: start: 20180802, end: 20181006
  5. GLUCOPHAGE [Concomitant]
     Active Substance: METFORMIN HYDROCHLORIDE
  6. ESIDREX [Concomitant]
     Active Substance: HYDROCHLOROTHIAZIDE
  7. ZELITREX [Suspect]
     Active Substance: VALACYCLOVIR HYDROCHLORIDE
     Indication: PROPHYLAXIS
     Dosage: 1000 MG, 1X/DAY
     Route: 048
     Dates: start: 20180802
  8. BACTRIM [Suspect]
     Active Substance: SULFAMETHOXAZOLE\TRIMETHOPRIM
     Indication: PROPHYLAXIS
     Dosage: 3 DF, WEEKLY
     Route: 048
     Dates: start: 20180802
  9. METHOTREXATE. [Suspect]
     Active Substance: METHOTREXATE
     Indication: ACUTE LYMPHOCYTIC LEUKAEMIA
     Dosage: 1890 MG, SINGLE
     Route: 042
     Dates: start: 20180918, end: 20180918
  10. LOXEN [NICARDIPINE HYDROCHLORIDE] [Concomitant]
     Active Substance: NICARDIPINE HYDROCHLORIDE
  11. LEVOTHYROX [Concomitant]
     Active Substance: LEVOTHYROXINE
  12. DEXAMETHASONE. [Suspect]
     Active Substance: DEXAMETHASONE
     Indication: ACUTE LYMPHOCYTIC LEUKAEMIA
     Dosage: 20 MG, 1X/DAY
     Route: 048
     Dates: start: 20180727, end: 20180825
  13. KIDROLASE [Suspect]
     Active Substance: ASPARAGINASE
     Indication: ACUTE LYMPHOCYTIC LEUKAEMIA
     Dosage: 18900 MG, SINGLE
     Route: 042
     Dates: start: 20180919, end: 20180919
  14. TAHOR [Concomitant]
     Active Substance: ATORVASTATIN CALCIUM
  15. ARACYTINE [Suspect]
     Active Substance: CYTARABINE
     Indication: ACUTE LYMPHOCYTIC LEUKAEMIA
     Dosage: 120 MG, CYCLIC (J9 J16 ET J23)
     Route: 037
     Dates: start: 20180817, end: 20180901

REACTIONS (2)
  - Hepatitis acute [Not Recovered/Not Resolved]
  - General physical health deterioration [Not Recovered/Not Resolved]

NARRATIVE: CASE EVENT DATE: 20180919
